FAERS Safety Report 19330843 (Version 3)
Quarter: 2021Q4

REPORT INFORMATION
  Report Type: Spontaneous
  Country: DE (occurrence: DE)
  Receive Date: 20210528
  Receipt Date: 20211217
  Transmission Date: 20220303
  Serious: Yes (Death, Hospitalization, Other)
  Sender: FDA-Public Use
  Company Number: DE-SA-2021SA175727

PATIENT

DRUGS (10)
  1. LIBTAYO [Suspect]
     Active Substance: CEMIPLIMAB-RWLC
     Indication: Metastases to bone
     Dosage: 350 MG, Q3W
     Dates: start: 201910, end: 202101
  2. LIBTAYO [Suspect]
     Active Substance: CEMIPLIMAB-RWLC
     Indication: Metastases to spine
     Dosage: UNK
  3. LIBTAYO [Suspect]
     Active Substance: CEMIPLIMAB-RWLC
     Indication: Skin squamous cell carcinoma metastatic
     Dosage: UNK
  4. LIBTAYO [Suspect]
     Active Substance: CEMIPLIMAB-RWLC
     Indication: Metastases to pleura
     Dosage: UNK
  5. TACROLIMUS [Concomitant]
     Active Substance: TACROLIMUS
     Indication: Immunosuppressant drug therapy
     Dosage: UNK
  6. TACROLIMUS [Concomitant]
     Active Substance: TACROLIMUS
     Indication: Prophylaxis against transplant rejection
     Dosage: UNK
  7. MYCOPHENOLATE MOFETIL [Concomitant]
     Active Substance: MYCOPHENOLATE MOFETIL
     Indication: Immunosuppressant drug therapy
     Dosage: UNK
  8. MYCOPHENOLATE MOFETIL [Concomitant]
     Active Substance: MYCOPHENOLATE MOFETIL
     Indication: Prophylaxis against transplant rejection
     Dosage: UNK
  9. METHYLPREDNISOLONE [Concomitant]
     Active Substance: METHYLPREDNISOLONE
     Indication: Immunosuppressant drug therapy
     Dosage: 2 MG, QD
  10. METHYLPREDNISOLONE [Concomitant]
     Active Substance: METHYLPREDNISOLONE
     Indication: Prophylaxis against transplant rejection
     Dosage: UNK

REACTIONS (5)
  - Multiple organ dysfunction syndrome [Fatal]
  - Respiratory failure [Unknown]
  - General physical health deterioration [Unknown]
  - Sepsis [Unknown]
  - Pneumonitis [Unknown]
